FAERS Safety Report 5323217-0 (Version None)
Quarter: 2007Q2

REPORT INFORMATION
  Report Type: 
  Country: None (occurrence: None)
  Receive Date: 20070220
  Receipt Date: 20070112
  Transmission Date: 20071010
  Serious: No
  Sender: FDA-Public Use
  Company Number: WAES 0701USA01912

PATIENT
  Sex: Male

DRUGS (4)
  1. JANUVIA [Suspect]
     Dosage: 100 MG/DAILY/PO
     Route: 048
  2. ACTOS [Concomitant]
  3. GLIMEPIRIDE [Concomitant]
  4. METFORMIN HCL [Concomitant]

REACTIONS (2)
  - ARTHRALGIA [None]
  - FEELING ABNORMAL [None]
